FAERS Safety Report 6915835-0 (Version None)
Quarter: 2010Q3

REPORT INFORMATION
  Report Type: 
  Country: None (occurrence: None)
  Receive Date: 20100810
  Receipt Date: 20100524
  Transmission Date: 20110219
  Serious: No
  Sender: FDA-Public Use
  Company Number: A0864057A

PATIENT
  Sex: Male

DRUGS (2)
  1. PAXIL [Suspect]
     Indication: PRODUCT USED FOR UNKNOWN INDICATION
     Route: 048
     Dates: end: 20100501
  2. ZOLPIDEM [Suspect]
     Indication: SLEEP DISORDER
     Dosage: 10MG AT NIGHT
     Dates: start: 20100501

REACTIONS (8)
  - ABNORMAL SENSATION IN EYE [None]
  - EUPHORIC MOOD [None]
  - EYE SWELLING [None]
  - FEELING HOT [None]
  - HYPERHIDROSIS [None]
  - HYPOAESTHESIA FACIAL [None]
  - ILL-DEFINED DISORDER [None]
  - PALPITATIONS [None]
